FAERS Safety Report 7632481-4 (Version None)
Quarter: 2011Q3

REPORT INFORMATION
  Report Type: 
  Country: None (occurrence: None)
  Receive Date: 20110725
  Receipt Date: 20100920
  Transmission Date: 20111222
  Serious: No
  Sender: FDA-Public Use
  Company Number: US-BRISTOL-MYERS SQUIBB COMPANY-15293889

PATIENT
  Age: 82 Year
  Sex: Female

DRUGS (5)
  1. GLIMEPIRIDE [Concomitant]
  2. SYNTHROID [Concomitant]
  3. COUMADIN [Suspect]
     Dates: start: 20100722
  4. ATENOLOL [Concomitant]
  5. COZAAR [Concomitant]

REACTIONS (1)
  - RASH MACULAR [None]
